FAERS Safety Report 6123708-9 (Version None)
Quarter: 2009Q1

REPORT INFORMATION
  Report Type: 
  Country: None (occurrence: None)
  Receive Date: 20090319
  Receipt Date: 20090312
  Transmission Date: 20090719
  Serious: Yes (Hospitalization, Other)
  Sender: FDA-Public Use
  Company Number: DE-BAYER-200916310GPV

PATIENT
  Age: 79 Year
  Sex: Male

DRUGS (8)
  1. NIFEDIPINE [Interacting]
     Indication: HYPERTENSION
     Dosage: TOTAL DAILY DOSE: 20 MG  UNIT DOSE: 20 MG
     Route: 048
     Dates: end: 20081120
  2. BELOC ZOK [Interacting]
     Indication: HYPERTENSION
     Dosage: TOTAL DAILY DOSE: 200 MG  UNIT DOSE: 100 MG
     Route: 048
     Dates: end: 20081119
  3. DIGITOXIN [Interacting]
     Indication: CARDIAC FAILURE
     Dosage: TOTAL DAILY DOSE: 0.07 MG  UNIT DOSE: 0.07 MG
     Route: 048
     Dates: end: 20081119
  4. ALLOPURINOL [Suspect]
     Indication: HYPERURICAEMIA
     Dosage: TOTAL DAILY DOSE: 100 MG  UNIT DOSE: 100 MG
     Route: 048
     Dates: end: 20081118
  5. RASILEZ [Suspect]
     Indication: HYPERTENSION
     Route: 048
     Dates: start: 20080801
  6. TOREM [Suspect]
     Indication: OEDEMA
     Dosage: TOTAL DAILY DOSE: 10 MG  UNIT DOSE: 5 MG
     Route: 048
  7. ACTRAPHANE 30/70 [Concomitant]
     Indication: TYPE 2 DIABETES MELLITUS
     Route: 058
  8. ASPIRIN [Concomitant]
     Indication: PROPHYLAXIS
     Dosage: TOTAL DAILY DOSE: 100 MG  UNIT DOSE: 100 MG
     Route: 048

REACTIONS (8)
  - BRADYCARDIA [None]
  - CARDIAC FAILURE [None]
  - DIARRHOEA [None]
  - DRUG LEVEL INCREASED [None]
  - GENERAL PHYSICAL HEALTH DETERIORATION [None]
  - OEDEMA PERIPHERAL [None]
  - PLEURAL EFFUSION [None]
  - WEIGHT DECREASED [None]
